FAERS Safety Report 7374558-7 (Version None)
Quarter: 2011Q1

REPORT INFORMATION
  Report Type: 
  Country: None (occurrence: None)
  Receive Date: 20110325
  Receipt Date: 20100315
  Transmission Date: 20110831
  Serious: No
  Sender: FDA-Public Use
  Company Number: US-MYLANLABS-2010S1004573

PATIENT
  Age: 50 Year
  Sex: Male
  Weight: 86.18 kg

DRUGS (2)
  1. PERCOCET [Concomitant]
  2. FENTANYL-100 [Suspect]
     Indication: BACK PAIN
     Dosage: CHANGED Q48H
     Route: 062
     Dates: start: 20050101

REACTIONS (6)
  - NAUSEA [None]
  - TREMOR [None]
  - DIARRHOEA [None]
  - DRUG WITHDRAWAL SYNDROME [None]
  - DRUG INEFFECTIVE [None]
  - VOMITING [None]
